FAERS Safety Report 4527840-2 (Version None)
Quarter: 2004Q4

REPORT INFORMATION
  Report Type: 
  Country: None (occurrence: None)
  Receive Date: 20041123
  Receipt Date: 20040420
  Transmission Date: 20050328
  Serious: Yes (Other)
  Sender: FDA-Public Use
  Company Number: ATO-04-0409

PATIENT
  Age: 51 Year
  Sex: Male
  Weight: 75 kg

DRUGS (3)
  1. TRISENOX [Suspect]
     Indication: METASTATIC MALIGNANT MELANOMA
     Dosage: (19 MG, QD X 5 DAY LOAD), IVI
     Route: 042
     Dates: start: 20040412, end: 20040416
  2. ASCORBIC ACID [Suspect]
     Indication: METASTATIC MALIGNANT MELANOMA
     Dosage: (1000 MG, QD X 5 DAYS LOAD), IVI
     Route: 042
     Dates: start: 20040412, end: 20040416
  3. TEMOZOLOMIDE [Suspect]
     Indication: METASTATIC MALIGNANT MELANOMA

REACTIONS (3)
  - ALANINE AMINOTRANSFERASE INCREASED [None]
  - FATIGUE [None]
  - VOMITING [None]
